FAERS Safety Report 17646173 (Version 3)
Quarter: 2024Q1

REPORT INFORMATION
  Report Type: Spontaneous
  Country: DE (occurrence: DE)
  Receive Date: 20200408
  Receipt Date: 20240320
  Transmission Date: 20240410
  Serious: Yes (Hospitalization)
  Sender: FDA-Public Use
  Company Number: None

PATIENT
  Age: 30 Month
  Sex: Female
  Weight: 9 kg

DRUGS (5)
  1. AMOXICILLIN\CLAVULANIC ACID [Suspect]
     Active Substance: AMOXICILLIN\CLAVULANIC ACID
     Indication: Respiratory tract infection
     Dosage: AMOXICILLIN/CLAVULANS?URE
     Route: 048
     Dates: start: 20190201, end: 20190207
  2. METOPROLOL [Concomitant]
     Active Substance: METOPROLOL
     Indication: Cardiac valve disease
     Dosage: 2-2-2MG, METOPROLOL RETARD
     Route: 048
     Dates: start: 20190101
  3. HYDROCHLOROTHIAZIDE [Concomitant]
     Active Substance: HYDROCHLOROTHIAZIDE
     Indication: Product used for unknown indication
     Dosage: 8-0-8MG, HYDROCHLOROTHIAZID
     Route: 048
     Dates: start: 20180808
  4. OMEPRAZOLE [Concomitant]
     Active Substance: OMEPRAZOLE
     Indication: Varices oesophageal
     Dosage: 8-0-8MG, OMEPRAZOL
     Route: 048
     Dates: start: 20181227
  5. ASPIRIN [Concomitant]
     Active Substance: ASPIRIN
     Indication: Cardiac valve disease
     Dosage: 25-0-0MG
     Route: 048

REACTIONS (5)
  - Cyanosis [Recovered/Resolved]
  - Seizure [Recovered/Resolved]
  - Swelling face [Recovered/Resolved]
  - Musculoskeletal stiffness [Recovered/Resolved]
  - Screaming [Recovered/Resolved]

NARRATIVE: CASE EVENT DATE: 20190202
